FAERS Safety Report 7751732-9 (Version None)
Quarter: 2011Q3

REPORT INFORMATION
  Report Type: 
  Country: None (occurrence: None)
  Receive Date: 20110915
  Receipt Date: 20110907
  Transmission Date: 20111222
  Serious: Yes (Death, Hospitalization)
  Sender: FDA-Public Use
  Company Number: US-BIOGENIDEC-2011BI025753

PATIENT
  Age: 51 Year
  Sex: Female

DRUGS (2)
  1. AVONEX [Suspect]
     Indication: MULTIPLE SCLEROSIS
     Route: 030
     Dates: start: 19960901, end: 20030101
  2. AVONEX [Suspect]
     Route: 030
     Dates: start: 20030101, end: 20070101

REACTIONS (7)
  - PNEUMONIA [None]
  - DECUBITUS ULCER [None]
  - ASPIRATION [None]
  - ABASIA [None]
  - MULTI-ORGAN FAILURE [None]
  - DEATH [None]
  - MULTIPLE SCLEROSIS [None]
